FAERS Safety Report 6105065-7 (Version None)
Quarter: 2009Q1

REPORT INFORMATION
  Report Type: 
  Country: None (occurrence: None)
  Receive Date: 20090306
  Receipt Date: 20090226
  Transmission Date: 20090719
  Serious: Yes (Other)
  Sender: FDA-Public Use
  Company Number: US-AVENTIS-200911563US

PATIENT
  Age: 41 Year
  Sex: Female

DRUGS (3)
  1. APIDRA [Suspect]
     Dosage: DOSE: 1 U WITH MEALS
     Route: 058
  2. LANTUS [Suspect]
     Dosage: DOSE: UNK
     Route: 058
  3. OPTICLIK GREY [Suspect]

REACTIONS (2)
  - HYPOGLYCAEMIA [None]
  - WRONG DRUG ADMINISTERED [None]
